FAERS Safety Report 15587183 (Version 1)
Quarter: 2018Q4

REPORT INFORMATION
  Report Type: Spontaneous
  Country: US (occurrence: US)
  Receive Date: 20181101
  Receipt Date: 20181101
  Transmission Date: 20190205
  Serious: No
  Sender: FDA-Public Use
  Company Number: None

PATIENT
  Age: 32 Year
  Sex: Male

DRUGS (1)
  1. PROCRIT [Suspect]
     Active Substance: ERYTHROPOIETIN
     Dosage: ?          OTHER STRENGTH:20000U/ML;?
     Dates: start: 201804

REACTIONS (2)
  - Gastroenteritis viral [None]
  - Dehydration [None]

NARRATIVE: CASE EVENT DATE: 20181017
